FAERS Safety Report 12781760 (Version 3)
Quarter: 2016Q4

REPORT INFORMATION
  Report Type: Report from Study
  Country: US (occurrence: US)
  Receive Date: 20160926
  Receipt Date: 20161014
  Transmission Date: 20170207
  Serious: Yes (Hospitalization, Other)
  Sender: FDA-Public Use
  Company Number: US-GILEAD-2016-0234603

PATIENT
  Age: 75 Year
  Sex: Male
  Weight: 78.47 kg

DRUGS (24)
  1. EYEBRIGHT [Concomitant]
  2. RASPBERRY. [Concomitant]
     Active Substance: RASPBERRY
  3. VITAMIN D3 [Concomitant]
     Active Substance: CHOLECALCIFEROL
  4. ALEVE [Concomitant]
     Active Substance: NAPROXEN SODIUM
  5. LEDIPASVIR/SOFOSBUVIR [Suspect]
     Active Substance: LEDIPASVIR\SOFOSBUVIR
     Indication: HEPATITIS C
     Dosage: 1 DF, QD
     Route: 048
     Dates: start: 20160902
  6. SPIRIVA [Concomitant]
     Active Substance: TIOTROPIUM BROMIDE MONOHYDRATE
  7. PRAVASTATIN. [Concomitant]
     Active Substance: PRAVASTATIN
  8. NITROGLYCERIN. [Concomitant]
     Active Substance: NITROGLYCERIN
  9. MAGNALIFE [Concomitant]
  10. NORCO [Concomitant]
     Active Substance: ACETAMINOPHEN\HYDROCODONE BITARTRATE
  11. TIOTROPIUM [Concomitant]
     Active Substance: TIOTROPIUM
  12. BACLOFEN. [Concomitant]
     Active Substance: BACLOFEN
  13. GINKO BILOBA [Concomitant]
     Active Substance: GINKGO
  14. VITAMIN B COMPLEX [Concomitant]
     Active Substance: CYANOCOBALAMIN\DEXPANTHENOL\NIACINAMIDE\PYRIDOXINE HYDROCHLORIDE\RIBOFLAVIN 5^-PHOSPHATE SODIUM\THIAMINE HYDROCHLORIDE\VITAMIN B COMPLEX
  15. OMEPRAZOLE. [Concomitant]
     Active Substance: OMEPRAZOLE
  16. ASPIRIN                            /00002701/ [Concomitant]
     Active Substance: ASPIRIN
  17. DEMEROL [Concomitant]
     Active Substance: MEPERIDINE HYDROCHLORIDE
  18. MILK THISTLE PLUS                  /08512201/ [Concomitant]
  19. ALBUTEROL                          /00139501/ [Concomitant]
     Active Substance: ALBUTEROL
  20. POMEGRANATE EXTRACT [Concomitant]
  21. LYRICA [Concomitant]
     Active Substance: PREGABALIN
  22. BILBERRY                           /01397601/ [Concomitant]
     Active Substance: BILBERRY
  23. FISH OIL [Concomitant]
     Active Substance: FISH OIL
  24. POTASSIUM CHLORIDE. [Concomitant]
     Active Substance: POTASSIUM CHLORIDE

REACTIONS (6)
  - Abdominal pain [Not Recovered/Not Resolved]
  - Diarrhoea [Unknown]
  - Liver disorder [Not Recovered/Not Resolved]
  - Cholangiocarcinoma [Unknown]
  - Gastroenteritis viral [Unknown]
  - Fatigue [Not Recovered/Not Resolved]

NARRATIVE: CASE EVENT DATE: 2016
